FAERS Safety Report 5179498-X (Version None)
Quarter: 2006Q4

REPORT INFORMATION
  Report Type: 
  Country: None (occurrence: None)
  Receive Date: 20061219
  Receipt Date: 20061213
  Transmission Date: 20070319
  Serious: Yes (Hospitalization)
  Sender: FDA-Public Use
  Company Number: FR-BRISTOL-MYERS SQUIBB COMPANY-13613286

PATIENT
  Age: 71 Year
  Sex: Male
  Weight: 55 kg

DRUGS (10)
  1. TAXOL [Suspect]
     Indication: BRONCHIAL CARCINOMA
     Route: 042
     Dates: start: 20061031, end: 20061031
  2. CARBOPLATIN [Concomitant]
     Dates: start: 20061031, end: 20061031
  3. MEDROL [Concomitant]
     Indication: PREMEDICATION
  4. POLARAMINE [Concomitant]
     Indication: PREMEDICATION
     Route: 041
     Dates: start: 20061031, end: 20061031
  5. ZANTAC [Concomitant]
     Indication: PREMEDICATION
     Dates: start: 20061031, end: 20061031
  6. CORDARONE [Concomitant]
  7. CORTANCYL [Concomitant]
  8. DEDROGYL [Concomitant]
  9. PARIET [Concomitant]
  10. COAPROVEL [Concomitant]

REACTIONS (5)
  - DYSPNOEA [None]
  - ERYTHEMA [None]
  - LOSS OF CONSCIOUSNESS [None]
  - MALAISE [None]
  - URTICARIA [None]
